FAERS Safety Report 5735760-0 (Version None)
Quarter: 2008Q2

REPORT INFORMATION
  Report Type: 
  Country: None (occurrence: None)
  Receive Date: 20080513
  Receipt Date: 20080507
  Transmission Date: 20081010
  Serious: Yes (Hospitalization)
  Sender: FDA-Public Use
  Company Number: DE-WYE-G01502508

PATIENT
  Age: 18 Year
  Sex: Male

DRUGS (3)
  1. VENLAFAXINE HCL [Suspect]
     Dosage: OVERDOSE AMOUNT 75 MG
     Route: 048
     Dates: start: 20080506, end: 20080506
  2. SEROQUEL [Suspect]
     Dosage: OVERDOSE AMOUNT 900 MG
     Route: 048
     Dates: start: 20080506, end: 20080506
  3. ALCOHOL [Suspect]
     Dosage: HALF A BOTTLE OF BEER AND SANGRIA
     Route: 048
     Dates: start: 20080506, end: 20080506

REACTIONS (1)
  - DRUG ABUSE [None]
